FAERS Safety Report 13652156 (Version 1)
Quarter: 2017Q2

REPORT INFORMATION
  Report Type: Report from Study
  Country: AT (occurrence: AT)
  Receive Date: 20170614
  Receipt Date: 20170614
  Transmission Date: 20170830
  Serious: Yes (Hospitalization, Disabling)
  Sender: FDA-Public Use
  Company Number: AT-AMGEN-AUTCT2012008383

PATIENT
  Age: 68 Year
  Sex: Female
  Weight: 65.4 kg

DRUGS (28)
  1. TAZONAM [Concomitant]
     Active Substance: TAZOBACTAM
     Dosage: 4 UNK, UNK
     Route: 042
     Dates: start: 20120126, end: 20120129
  2. ALLEVYN AG HEEL [Concomitant]
     Dosage: UNK
     Route: 061
     Dates: start: 20111207, end: 20111230
  3. MYCOSTATIN [Concomitant]
     Active Substance: NYSTATIN
     Dosage: UNK
     Route: 048
     Dates: start: 20111122, end: 20111125
  4. ZINC. [Concomitant]
     Active Substance: ZINC
     Dosage: UNK
     Route: 061
     Dates: start: 20111207, end: 20111230
  5. ANAEROBEX [Concomitant]
     Route: 048
     Dates: start: 20120126, end: 20120129
  6. PEGYLATED LIPOSOMAL DOXORUBICIN HYDROCHLORIDE [Concomitant]
     Active Substance: DOXORUBICIN HYDROCHLORIDE
     Dosage: 80.5 MG, UNK
     Route: 042
     Dates: start: 20111123, end: 20111123
  7. MOTILIUM [Concomitant]
     Active Substance: DOMPERIDONE
     Dosage: 30 MG, UNK
     Route: 050
     Dates: start: 20110927
  8. CONCOR [Concomitant]
     Active Substance: BISOPROLOL FUMARATE
     Dosage: 1.25 MG, UNK
     Route: 048
     Dates: start: 20110925
  9. FRESUBIN [Concomitant]
     Active Substance: AMINO ACIDS\DEXTROSE\ELECTROLYTES NOS\SOYBEAN OIL\VITAMINS
     Dosage: UNK
     Route: 048
     Dates: start: 20111213
  10. NAVOBAN [Concomitant]
     Active Substance: TROPISETRON HYDROCHLORIDE
     Dosage: 5 MG, UNK
     Route: 048
     Dates: start: 20110927
  11. PASPERTIN [Concomitant]
     Active Substance: METOCLOPRAMIDE HYDROCHLORIDE
     Dosage: UNK
     Route: 048
     Dates: start: 20110927
  12. BLOOD CELLS, PACKED HUMAN [Concomitant]
     Active Substance: HUMAN RED BLOOD CELL
     Dosage: UNK
     Route: 042
     Dates: start: 20111229, end: 20111229
  13. NERIFORTE [Concomitant]
     Dosage: UNK
     Route: 061
     Dates: start: 20111229, end: 20120105
  14. LENDORM [Concomitant]
     Active Substance: BROTIZOLAM
     Dosage: 0.25 MG, UNK
     Route: 048
     Dates: start: 20110927
  15. KALIUMCHLORID FRESENIUS KABI [Concomitant]
     Dosage: UNK
     Route: 042
     Dates: start: 20111229, end: 20120123
  16. ANTIFLAT [Concomitant]
     Dosage: UNK
     Route: 048
     Dates: start: 20120122, end: 20120122
  17. TRAMAL [Concomitant]
     Active Substance: TRAMADOL
     Dosage: UNK
     Route: 048
     Dates: start: 20111213
  18. OMEPRAZOL [Concomitant]
     Active Substance: OMEPRAZOLE
     Dosage: 40 MG, UNK
     Route: 048
     Dates: start: 20110927
  19. IRENAT [Concomitant]
     Active Substance: SODIUM PERCHLORATE MONOHYDRATE
     Dosage: UNK
     Route: 048
     Dates: start: 20110918
  20. ULTRABASE [Concomitant]
     Dosage: UNK
     Route: 061
     Dates: start: 20111213, end: 20111216
  21. THIAMAZOL [Concomitant]
     Active Substance: METHIMAZOLE
     Dosage: 10 MG, UNK
     Route: 048
  22. FORTECORTIN [Concomitant]
     Active Substance: DEXAMETHASONE
     Dosage: 8 MG, UNK
     Route: 048
     Dates: start: 20110926
  23. CORMAGNESIN [Concomitant]
     Route: 042
     Dates: start: 20111229, end: 20111229
  24. AMG 386 [Suspect]
     Active Substance: TREBANANIB
     Indication: OVARIAN CANCER
     Dosage: UNK
     Route: 042
     Dates: start: 20110927, end: 20120201
  25. MEXALEN [Concomitant]
     Active Substance: ACETAMINOPHEN
     Dosage: 1 G, UNK
     Route: 048
     Dates: start: 20110628
  26. DIFLUCAN [Concomitant]
     Active Substance: FLUCONAZOLE
     Dosage: 200 MG, UNK
     Route: 048
     Dates: start: 20111107, end: 20111201
  27. LOVENOX [Concomitant]
     Active Substance: ENOXAPARIN SODIUM
     Dosage: 40 MG, UNK
     Route: 058
     Dates: start: 20110918
  28. CLAVAMOX [Concomitant]
     Active Substance: AMOXICILLIN\CLAVULANATE POTASSIUM

REACTIONS (1)
  - Intra-abdominal fluid collection [Recovered/Resolved]

NARRATIVE: CASE EVENT DATE: 20120206
